FAERS Safety Report 4906975-6 (Version None)
Quarter: 2006Q1

REPORT INFORMATION
  Report Type: 
  Country: None (occurrence: None)
  Receive Date: 20060207
  Receipt Date: 20060118
  Transmission Date: 20060701
  Serious: Yes (Other)
  Sender: FDA-Public Use
  Company Number: US200601002889

PATIENT
  Age: 74 Year
  Sex: Female

DRUGS (1)
  1. HUMULIN 70/30 [Suspect]

REACTIONS (4)
  - DIALYSIS [None]
  - LEUKAEMIA [None]
  - OSTEOPOROSIS [None]
  - VISUAL DISTURBANCE [None]
